FAERS Safety Report 11023288 (Version 1)
Quarter: 2015Q2

REPORT INFORMATION
  Report Type: Spontaneous
  Country: FR (occurrence: FR)
  Receive Date: 20150413
  Receipt Date: 20150413
  Transmission Date: 20150821
  Serious: Yes (Life-Threatening, Hospitalization)
  Sender: FDA-Public Use
  Company Number: FR-ABBVIE-15P-056-1375290-00

PATIENT
  Age: 23 Year
  Sex: Female

DRUGS (1)
  1. NORVIR [Suspect]
     Active Substance: RITONAVIR
     Indication: HIV INFECTION
     Route: 065

REACTIONS (2)
  - Dysphagia [Unknown]
  - Cerebral toxoplasmosis [Unknown]
